FAERS Safety Report 9734578 (Version 8)
Quarter: 2015Q4

REPORT INFORMATION
  Report Type: Report from Study
  Country: GB (occurrence: GB)
  Receive Date: 20131206
  Receipt Date: 20151027
  Transmission Date: 20160305
  Serious: Yes (Death, Hospitalization, Other)
  Sender: FDA-Public Use
  Company Number: GB-ROCHE-1314605

PATIENT
  Age: 85 Year
  Sex: Female
  Weight: 59 kg

DRUGS (7)
  1. LISINOPRIL. [Concomitant]
     Active Substance: LISINOPRIL
     Indication: HYPERTENSION
     Route: 065
  2. RANIBIZUMAB [Suspect]
     Active Substance: RANIBIZUMAB
     Route: 050
     Dates: start: 20130711, end: 20130711
  3. BENDROFLUAZIDE [Concomitant]
     Active Substance: BENDROFLUMETHIAZIDE
     Route: 065
     Dates: start: 20131014
  4. ULTRASOUND [Concomitant]
  5. RANIBIZUMAB [Suspect]
     Active Substance: RANIBIZUMAB
     Indication: NEOVASCULAR AGE-RELATED MACULAR DEGENERATION
     Route: 050
     Dates: start: 20111222
  6. LISINOPRIL. [Concomitant]
     Active Substance: LISINOPRIL
     Route: 065
     Dates: start: 20131014
  7. BENDROFLUAZIDE [Concomitant]
     Active Substance: BENDROFLUMETHIAZIDE
     Indication: HYPERTENSION
     Route: 065

REACTIONS (15)
  - Abdominal mass [Not Recovered/Not Resolved]
  - Hydronephrosis [Recovering/Resolving]
  - Leiomyosarcoma [Recovering/Resolving]
  - Uterine mass [Unknown]
  - Pelvic mass [Unknown]
  - Vaginal haemorrhage [Fatal]
  - Necrosis [Recovering/Resolving]
  - Haemorrhage [Recovering/Resolving]
  - Skin cancer [Unknown]
  - Pleural effusion [Unknown]
  - Endometrial stromal sarcoma [Fatal]
  - Sarcoma uterus [Fatal]
  - Ascites [Recovering/Resolving]
  - Ureteric obstruction [Recovering/Resolving]
  - Renal failure [Recovering/Resolving]

NARRATIVE: CASE EVENT DATE: 20131015
